FAERS Safety Report 4456103-9 (Version None)
Quarter: 2004Q3

REPORT INFORMATION
  Report Type: 
  Country: None (occurrence: None)
  Receive Date: 20040920
  Receipt Date: 20040908
  Transmission Date: 20050211
  Serious: Yes (Death)
  Sender: FDA-Public Use
  Company Number: 04H-167-0273244-00

PATIENT
  Age: 13 Year
  Sex: Female

DRUGS (8)
  1. SUCCINYLCHOLINE CHLORIDE [Suspect]
     Indication: INDUCTION OF ANAESTHESIA
     Dosage: 50 MG, ONCE, INTRAVENOUS ; 9:10 AM
     Route: 042
  2. METHOXYFLURANE [Suspect]
     Indication: ANAESTHESIA
     Dosage: SEE IMAGE
     Route: 055
  3. OPIUM ALKALOIDS TOTAL [Concomitant]
  4. HYOSCINE HBR HYT [Concomitant]
  5. THIOPENTAL SODIUM [Concomitant]
  6. TUBOCURARINE CHLORIDE [Concomitant]
  7. NITROUS OXIDE [Concomitant]
  8. OXYGEN [Concomitant]

REACTIONS (17)
  - ACIDOSIS [None]
  - ARRHYTHMIA [None]
  - BLOOD PRESSURE ABNORMAL [None]
  - BODY TEMPERATURE INCREASED [None]
  - BRAIN OEDEMA [None]
  - CARDIAC ARREST [None]
  - CYANOSIS [None]
  - DRUG INTERACTION [None]
  - DYSPNOEA [None]
  - ELECTROCARDIOGRAM QRS COMPLEX PROLONGED [None]
  - HYPERKALAEMIA [None]
  - HYPERTHERMIA MALIGNANT [None]
  - MUSCLE SPASMS [None]
  - MYOPATHY [None]
  - RENAL FAILURE [None]
  - SKIN WARM [None]
  - TRACHEAL OBSTRUCTION [None]
